FAERS Safety Report 7480587-5 (Version None)
Quarter: 2011Q2

REPORT INFORMATION
  Report Type: 
  Country: None (occurrence: None)
  Receive Date: 20110504
  Receipt Date: 20110426
  Transmission Date: 20111010
  Serious: Yes (Other)
  Sender: FDA-Public Use
  Company Number: 2011SP005215

PATIENT
  Age: 22 Year
  Sex: Female
  Weight: 55 kg

DRUGS (1)
  1. NUVARING [Suspect]
     Indication: CONTRACEPTION
     Dosage: QM, VAG
     Route: 067
     Dates: start: 20090101

REACTIONS (13)
  - HYMENOLEPIASIS [None]
  - VULVOVAGINAL BURNING SENSATION [None]
  - PRODUCT QUALITY ISSUE [None]
  - INFECTION PROTOZOAL [None]
  - GENITOURINARY TRACT INFECTION [None]
  - VULVOVAGINAL PRURITUS [None]
  - LATEX ALLERGY [None]
  - OVARIAN CYST [None]
  - COITAL BLEEDING [None]
  - DIARRHOEA [None]
  - HYPERBILIRUBINAEMIA [None]
  - ABDOMINAL PAIN [None]
  - ASCARIASIS [None]
